FAERS Safety Report 5404268-4 (Version None)
Quarter: 2007Q3

REPORT INFORMATION
  Report Type: 
  Country: None (occurrence: None)
  Receive Date: 20070731
  Receipt Date: 20070717
  Transmission Date: 20080115
  Serious: Yes (Hospitalization)
  Sender: FDA-Public Use
  Company Number: 17055

PATIENT
  Sex: Male

DRUGS (10)
  1. VINCRISTINE. MFR: MAYNE [Suspect]
     Dosage: 2 MG WEEKLY IV
     Route: 042
     Dates: start: 20070511, end: 20070525
  2. KIDROLASE [Suspect]
     Dosage: 4285 IU OTH IM
     Route: 030
     Dates: start: 20070521, end: 20070529
  3. ZAVEDOS. MFR: NOT SPECIFIED [Suspect]
     Dosage: 8.6 MG WEEKLY IV
     Route: 042
     Dates: start: 20070511, end: 20070525
  4. CORTANCYL  MFR: NOT SPECIFIED [Suspect]
     Dates: start: 20070511, end: 20070531
  5. ATARAX /00058401/. MFR. NOT SEPECIFIED [Suspect]
     Dates: end: 20070531
  6. ANTALVIC [Suspect]
     Dates: end: 20070531
  7. TOPALGIC /00599202/ . MFR: NOT SPECIFIED [Suspect]
     Dates: end: 20070531
  8. METHOTREXATE [Concomitant]
  9. DEPO-MEDROL [Concomitant]
  10. ARACYTINE [Concomitant]

REACTIONS (2)
  - ANTITHROMBIN III DECREASED [None]
  - PANCREATITIS [None]
